FAERS Safety Report 5670828-9 (Version None)
Quarter: 2008Q2

REPORT INFORMATION
  Report Type: 
  Country: None (occurrence: None)
  Receive Date: 20080305
  Receipt Date: 20070926
  Transmission Date: 20081010
  Serious: Yes (Other)
  Sender: FDA-Public Use
  Company Number: BDI-010239

PATIENT
  Sex: Male

DRUGS (4)
  1. ISOVUE-370 [Suspect]
     Indication: COMPUTERISED TOMOGRAM
     Dosage: INTRAVENOUS
     Route: 042
     Dates: start: 20070924, end: 20070924
  2. VERSID [Concomitant]
  3. SOLU-MEDROL [Concomitant]
  4. PREDNISONE 50MG TAB [Concomitant]

REACTIONS (1)
  - HYPERSENSITIVITY [None]
